FAERS Safety Report 10044679 (Version 2)
Quarter: 2014Q2

REPORT INFORMATION
  Report Type: Spontaneous
  Country: US (occurrence: US)
  Receive Date: 20140328
  Receipt Date: 20140512
  Transmission Date: 20141212
  Serious: No
  Sender: FDA-Public Use
  Company Number: US-009507513-1403USA008474

PATIENT
  Sex: Female
  Weight: 113.38 kg

DRUGS (7)
  1. OXYTROL FOR WOMEN [Suspect]
     Indication: POLLAKIURIA
     Dosage: 1 DF, Q4D
     Route: 062
     Dates: start: 201402, end: 20140401
  2. OXYTROL FOR WOMEN [Suspect]
     Indication: MICTURITION URGENCY
  3. NOVOLIN 70/30 [Concomitant]
     Indication: BLOOD INSULIN
     Dosage: UNK, UNKNOWN
  4. SIMVASTATIN [Concomitant]
     Indication: BLOOD CHOLESTEROL
     Dosage: UNK, UNKNOWN
  5. LOSARTAN POTASSIUM [Concomitant]
     Indication: BLOOD PRESSURE
     Dosage: UNK, UNKNOWN
  6. LYRICA [Concomitant]
     Indication: BACK PAIN
     Dosage: UNK, UNKNOWN
  7. TRAMADOL HYDROCHLORIDE [Concomitant]
     Indication: BACK PAIN
     Dosage: UNK, UNKNOWN

REACTIONS (4)
  - Rash [Unknown]
  - Pruritus [Unknown]
  - Erythema [Unknown]
  - Drug effect decreased [Unknown]
